FAERS Safety Report 8943767 (Version 3)
Quarter: 2012Q4

REPORT INFORMATION
  Report Type: Report from Study
  Country: US (occurrence: US)
  Receive Date: 20121204
  Receipt Date: 20121213
  Transmission Date: 20130627
  Serious: Yes (Hospitalization)
  Sender: FDA-Public Use
  Company Number: US-PFIZER INC-2012300209

PATIENT
  Age: 29 Year
  Sex: Female

DRUGS (12)
  1. IBUPROFEN [Suspect]
     Indication: HEADACHE
     Route: 048
     Dates: end: 20081016
  2. IBUPROFEN [Suspect]
     Indication: KNEE PAIN
     Route: 048
     Dates: start: 20081022
  3. TYLENOL PM [Suspect]
     Indication: PRODUCT USED FOR UNKNOWN INDICATION
     Dosage: UNK
     Route: 048
     Dates: start: 20081022
  4. FLUOXETINE [Suspect]
     Indication: DEPRESSION
     Dosage: UNK
     Route: 048
     Dates: end: 20081023
  5. FLUOXETINE [Suspect]
     Dosage: 40 mg, 1x/day
     Route: 048
     Dates: end: 20081023
  6. ZOLPIDEM [Suspect]
     Indication: INSOMNIA
     Dosage: 10 mg, UNK
     Route: 048
     Dates: end: 20081022
  7. ZOLPIDEM [Suspect]
     Route: 048
     Dates: start: 20081022
  8. CLONAZEPAM [Suspect]
     Indication: ANXIETY
     Route: 048
     Dates: start: 20081022
  9. CLONAZEPAM [Suspect]
     Route: 048
     Dates: end: 20081023
  10. SLEEP AID [Suspect]
     Indication: PRODUCT USED FOR UNKNOWN INDICATION
     Route: 048
     Dates: start: 20081022
  11. TYLENOL [Concomitant]
     Dosage: 2 DF, UNK
  12. TYLENOL [Concomitant]
     Route: 065

REACTIONS (2)
  - Intentional overdose [Unknown]
  - Liver injury [Recovering/Resolving]
